FAERS Safety Report 12413273 (Version 1)
Quarter: 2016Q2

REPORT INFORMATION
  Report Type: Spontaneous
  Country: US (occurrence: US)
  Receive Date: 20160527
  Receipt Date: 20160527
  Transmission Date: 20160815
  Serious: Yes (Other)
  Sender: FDA-Public Use
  Company Number: US-SA-2016SA098963

PATIENT
  Age: 84 Year
  Sex: Female

DRUGS (2)
  1. LANTUS SOLOSTAR [Suspect]
     Active Substance: INSULIN GLARGINE
     Indication: DIABETES MELLITUS
     Dosage: START DATE: 7 OR 8 YEARS DOSE:10 UNIT(S)
     Route: 065
  2. SOLOSTAR [Concomitant]
     Active Substance: DEVICE
     Dosage: START DATE: 7 OR 8 YEARS

REACTIONS (5)
  - Memory impairment [Unknown]
  - Diarrhoea [Unknown]
  - Atrial fibrillation [Unknown]
  - Asthenia [Unknown]
  - Impatience [Unknown]
